FAERS Safety Report 9706771 (Version 1)
Quarter: 2013Q4

REPORT INFORMATION
  Report Type: Report from Study
  Country: BR (occurrence: BR)
  Receive Date: 20131125
  Receipt Date: 20131125
  Transmission Date: 20140711
  Serious: Yes (Hospitalization, Other)
  Sender: FDA-Public Use
  Company Number: PHHY2013BR133955

PATIENT
  Sex: Female
  Weight: 63 kg

DRUGS (4)
  1. CARBAMAZEPINE [Suspect]
     Indication: TRIGEMINAL NERVE DISORDER
     Dosage: 200 MG, (2 AT NIGHT AND 1 IN MORNING)
     Route: 048
  2. TEGRETOL CR [Suspect]
     Indication: TRIGEMINAL NERVE DISORDER
     Dosage: 200 MG, (2 AT NIGHT AND 1 IN MORNING)
     Route: 048
  3. VYTORIN [Concomitant]
     Indication: BLOOD CHOLESTEROL
  4. ANTICOAGULANTS [Concomitant]

REACTIONS (4)
  - Trigeminal neuralgia [Unknown]
  - Carotid artery occlusion [Unknown]
  - Blood pressure inadequately controlled [Unknown]
  - Retching [Unknown]
